FAERS Safety Report 7834056-0 (Version None)
Quarter: 2011Q4

REPORT INFORMATION
  Report Type: 
  Country: None (occurrence: None)
  Receive Date: 20111024
  Receipt Date: 20111024
  Transmission Date: 20120403
  Serious: Yes (Other)
  Sender: FDA-Public Use
  Company Number: None

PATIENT
  Sex: Female

DRUGS (2)
  1. VIVELLE-DOT [Concomitant]
     Dosage: 0.05 MG/DAY PATCH
     Route: 062
     Dates: start: 20110401, end: 20111020
  2. VIVELLE-DOT [Suspect]
     Indication: MENOPAUSE
     Dosage: 0.1 MG/DAY PATCH
     Route: 062
     Dates: start: 20080501, end: 20080615

REACTIONS (2)
  - PRODUCT SUBSTITUTION ISSUE [None]
  - DRUG LEVEL DECREASED [None]
